FAERS Safety Report 25735389 (Version 1)
Quarter: 2025Q3

REPORT INFORMATION
  Report Type: Spontaneous
  Country: US (occurrence: US)
  Receive Date: 20250828
  Receipt Date: 20250828
  Transmission Date: 20251021
  Serious: Yes (Hospitalization)
  Sender: SANOFI AVENTIS
  Company Number: US-SA-2025SA257081

PATIENT
  Sex: Male

DRUGS (10)
  1. DUPIXENT [Suspect]
     Active Substance: DUPILUMAB
     Indication: Essential hypertension
     Dosage: 300 MG, QOW
     Route: 058
  2. ALBUTEROL [Concomitant]
     Active Substance: ALBUTEROL
  3. ATENOLOL [Concomitant]
     Active Substance: ATENOLOL
  4. CLINDAMYCIN [Concomitant]
     Active Substance: CLINDAMYCIN
  5. HYDROXYZINE [Concomitant]
     Active Substance: HYDROXYZINE HYDROCHLORIDE
  6. LIDOCAINE [Concomitant]
     Active Substance: LIDOCAINE
  7. NEOMYCIN\POLYMYXIN [Concomitant]
     Active Substance: NEOMYCIN\POLYMYXIN
  8. PREDNISONE [Concomitant]
     Active Substance: PREDNISONE
  9. TACROLIMUS [Concomitant]
     Active Substance: TACROLIMUS
  10. TRIAMCINOLONE [Concomitant]
     Active Substance: TRIAMCINOLONE

REACTIONS (2)
  - Vein disorder [Unknown]
  - Product use in unapproved indication [Unknown]
